FAERS Safety Report 4319881-5 (Version None)
Quarter: 2004Q1

REPORT INFORMATION
  Report Type: 
  Country: None (occurrence: None)
  Receive Date: 20040319
  Receipt Date: 20040312
  Transmission Date: 20041129
  Serious: Yes (Disabling)
  Sender: FDA-Public Use
  Company Number: JP-BRISTOL-MYERS SQUIBB COMPANY-12531182

PATIENT
  Age: 39 Year
  Sex: Male

DRUGS (11)
  1. TRAZODONE HCL [Suspect]
     Indication: DEPRESSIVE SYMPTOM
     Route: 048
     Dates: start: 20000628, end: 20000628
  2. ALPRAZOLAM [Concomitant]
     Indication: ANXIETY
     Route: 048
     Dates: start: 20000613
  3. CLOMIPRAMINE HCL [Concomitant]
  4. TETRAMIDE [Concomitant]
     Indication: DEPRESSIVE SYMPTOM
     Route: 048
     Dates: start: 20000621
  5. ZOPICLONE [Concomitant]
     Indication: INSOMNIA
     Route: 048
     Dates: start: 20000621
  6. FLUNITRAZEPAM [Concomitant]
     Indication: INSOMNIA
     Route: 048
     Dates: start: 20000621, end: 20000703
  7. BROTIZOLAM [Concomitant]
     Indication: INSOMNIA
     Route: 048
     Dates: start: 20000621, end: 20000703
  8. ETHYL LOFLAZEPATE [Concomitant]
     Indication: ANXIETY
     Route: 048
     Dates: start: 20000621, end: 20000703
  9. ETIZOLAM [Concomitant]
     Indication: ANXIETY
     Route: 048
     Dates: start: 20000621
  10. PROTOPORPHYRIN DISODIUM [Concomitant]
     Indication: HEPATIC FUNCTION ABNORMAL
     Route: 048
     Dates: start: 20000621, end: 20000703
  11. DALSAIKOTO [Concomitant]
     Indication: HEPATIC FUNCTION ABNORMAL
     Route: 048
     Dates: start: 20000621, end: 20000703

REACTIONS (1)
  - DYSTONIA [None]
